FAERS Safety Report 8303597-4 (Version None)
Quarter: 2012Q2

REPORT INFORMATION
  Report Type: 
  Country: None (occurrence: None)
  Receive Date: 20120416
  Receipt Date: 20120404
  Transmission Date: 20120825
  Serious: Yes (Other)
  Sender: FDA-Public Use
  Company Number: AEITA201200195

PATIENT
  Age: 77 Year
  Sex: Female

DRUGS (4)
  1. ALBUTEIN [Suspect]
     Indication: ASCITES
     Dosage: 10 GM;TOTAL;IV
     Route: 042
     Dates: start: 20120326, end: 20120326
  2. FUROSEMIDE [Concomitant]
  3. POTASSIUM CANRENOATE [Concomitant]
  4. OMEPRAZOLE [Concomitant]

REACTIONS (4)
  - BRONCHOSPASM [None]
  - DYSPNOEA [None]
  - RASH [None]
  - RESPIRATORY FAILURE [None]
